FAERS Safety Report 8955036 (Version 1)
Quarter: 2012Q4

REPORT INFORMATION
  Report Type: 
  Country: BE (occurrence: BE)
  Receive Date: 20121210
  Receipt Date: 20121210
  Transmission Date: 20130627
  Serious: Yes (Other)
  Sender: FDA-Public Use
  Company Number: BE-JNJFOC-20121203333

PATIENT
  Age: 78 Year

DRUGS (7)
  1. XARELTO [Suspect]
     Indication: CONGESTIVE CARDIOMYOPATHY
     Route: 048
     Dates: start: 20120907
  2. XARELTO [Suspect]
     Indication: ATRIAL FIBRILLATION
     Route: 048
     Dates: start: 20120907
  3. XARELTO [Suspect]
     Indication: CEREBROVASCULAR ACCIDENT PROPHYLAXIS
     Route: 048
     Dates: start: 20120907
  4. EMCONCOR [Concomitant]
     Route: 065
  5. LANOXIN [Concomitant]
     Route: 065
  6. TRITACE [Concomitant]
     Route: 065
  7. LASIX [Concomitant]
     Dosage: 1/4 co/day
     Route: 065

REACTIONS (1)
  - Deafness unilateral [Recovering/Resolving]
